FAERS Safety Report 21598008 (Version 1)
Quarter: 2022Q4

REPORT INFORMATION
  Report Type: Report from Study
  Country: US (occurrence: US)
  Receive Date: 20221115
  Receipt Date: 20221115
  Transmission Date: 20230112
  Serious: No
  Sender: FDA-Public Use
  Company Number: US-ABBVIE-22K-163-4443671-00

PATIENT
  Sex: Female

DRUGS (2)
  1. HUMIRA [Suspect]
     Active Substance: ADALIMUMAB
     Indication: Psoriatic arthropathy
     Route: 058
     Dates: start: 2022
  2. HUMIRA [Suspect]
     Active Substance: ADALIMUMAB
     Route: 058

REACTIONS (4)
  - Nasopharyngitis [Not Recovered/Not Resolved]
  - Sinusitis [Recovering/Resolving]
  - Streptococcal infection [Recovered/Resolved]
  - Pharyngitis streptococcal [Recovering/Resolving]

NARRATIVE: CASE EVENT DATE: 20220101
